FAERS Safety Report 8264238-8 (Version None)
Quarter: 2012Q2

REPORT INFORMATION
  Report Type: 
  Country: None (occurrence: None)
  Receive Date: 20120406
  Receipt Date: 20120328
  Transmission Date: 20120825
  Serious: Yes (Hospitalization)
  Sender: FDA-Public Use
  Company Number: CA-JNJFOC-20120315230

PATIENT
  Sex: Male
  Weight: 72 kg

DRUGS (3)
  1. REMICADE [Suspect]
     Indication: CROHN'S DISEASE
     Route: 042
     Dates: start: 20120124
  2. HEART MEDICATION (NOS) [Concomitant]
     Route: 065
  3. REMICADE [Suspect]
     Dosage: ONCE EVERY 8 WEEKS THERE AFTER
     Route: 042
     Dates: start: 20110125

REACTIONS (1)
  - SURGERY [None]
